FAERS Safety Report 5040955-8 (Version None)
Quarter: 2006Q2

REPORT INFORMATION
  Report Type: 
  Country: None (occurrence: None)
  Receive Date: 20060601
  Receipt Date: 20060306
  Transmission Date: 20061013
  Serious: No
  Sender: FDA-Public Use
  Company Number: 2006PV009788

PATIENT
  Age: 49 Year
  Sex: Female
  Weight: 133.8111 kg

DRUGS (5)
  1. BYETTA [Suspect]
     Indication: DIABETES MELLITUS NON-INSULIN-DEPENDENT
     Dosage: 5 MCG;BID;SC
     Route: 057
     Dates: start: 20060227, end: 20060305
  2. METFORMIN [Concomitant]
  3. AVANDAMET [Concomitant]
  4. AMARYL [Concomitant]
  5. PREVACID [Concomitant]

REACTIONS (6)
  - DECREASED APPETITE [None]
  - DIZZINESS [None]
  - DYSGEUSIA [None]
  - HEARING IMPAIRED [None]
  - NAUSEA [None]
  - VOMITING [None]
